FAERS Safety Report 6813819-4 (Version None)
Quarter: 2010Q3

REPORT INFORMATION
  Report Type: 
  Country: None (occurrence: None)
  Receive Date: 20100702
  Receipt Date: 20100624
  Transmission Date: 20110219
  Serious: Yes (Life-Threatening, Hospitalization)
  Sender: FDA-Public Use
  Company Number: US-BIOGENIDEC-2010BI018951

PATIENT
  Age: 56 Year
  Sex: Male
  Weight: 77 kg

DRUGS (17)
  1. TYSABRI [Suspect]
     Indication: MULTIPLE SCLEROSIS
     Route: 042
     Dates: start: 20080616
  2. LISINOPRIL [Concomitant]
     Indication: HYPERTENSION
     Route: 048
  3. CALCIUM CARBONATE [Concomitant]
     Indication: SUPPLEMENTATION THERAPY
     Route: 048
  4. OXYBUTYNIN CHLORIDE [Concomitant]
     Indication: URINARY RETENTION
     Route: 048
  5. SENOKOT [Concomitant]
     Indication: CONSTIPATION
     Route: 048
  6. BACLOFEN [Concomitant]
     Indication: MULTIPLE SCLEROSIS
     Route: 048
  7. SERTRALINE [Concomitant]
     Indication: DEPRESSION
     Route: 048
  8. METROCLOPRAMIDE [Concomitant]
     Indication: GASTROINTESTINAL HYPOMOTILITY
     Route: 048
  9. OMEPRAZOLE [Concomitant]
     Indication: ABDOMINAL DISCOMFORT
     Route: 048
  10. ASPIRIN [Concomitant]
     Route: 048
  11. ACETAMINOPHEN [Concomitant]
     Indication: PAIN
     Route: 048
  12. LOMOTIL [Concomitant]
     Route: 048
  13. ENALAPRIL MALEATE [Concomitant]
     Route: 048
  14. VERAPAMIL [Concomitant]
     Route: 048
  15. AMITRIPTYLINE [Concomitant]
     Route: 048
  16. DEPAKOTE [Concomitant]
     Route: 048
  17. ENABLEX [Concomitant]
     Route: 048

REACTIONS (1)
  - PULMONARY EMBOLISM [None]
